FAERS Safety Report 16760742 (Version 1)
Quarter: 2019Q3

REPORT INFORMATION
  Report Type: Report from Study
  Country: CA (occurrence: CA)
  Receive Date: 20190830
  Receipt Date: 20190830
  Transmission Date: 20191005
  Serious: Yes (Other)
  Sender: FDA-Public Use
  Company Number: CA-PFIZER INC-2019371122

PATIENT
  Age: 25 Year
  Sex: Male

DRUGS (3)
  1. GILENYA [Interacting]
     Active Substance: FINGOLIMOD HYDROCHLORIDE
     Dosage: 0.5 MG, UNK
     Route: 048
  2. DETROL [Suspect]
     Active Substance: TOLTERODINE TARTRATE
     Indication: HYPERTONIC BLADDER
     Dosage: UNK
     Route: 065
  3. VESICARE [Interacting]
     Active Substance: SOLIFENACIN SUCCINATE
     Dosage: 5.0 MG, UNK
     Route: 065

REACTIONS (5)
  - Autism spectrum disorder [Recovered/Resolved]
  - Potentiating drug interaction [Recovered/Resolved]
  - Hypertonic bladder [Recovered/Resolved]
  - Electrocardiogram QT prolonged [Recovered/Resolved]
  - Visual acuity reduced [Recovered/Resolved]
